FAERS Safety Report 4427243-5 (Version None)
Quarter: 2004Q3

REPORT INFORMATION
  Report Type: 
  Country: None (occurrence: None)
  Receive Date: 20040813
  Receipt Date: 20040813
  Transmission Date: 20050211
  Serious: Yes (Hospitalization)
  Sender: FDA-Public Use
  Company Number: None

PATIENT
  Sex: Male
  Weight: 55.3388 kg

DRUGS (14)
  1. VELCADE [Suspect]
     Indication: MANTLE CELL LYMPHOMA
     Dosage: SEE IMAGE
     Dates: start: 20040611
  2. VELCADE [Suspect]
     Indication: MANTLE CELL LYMPHOMA
     Dosage: SEE IMAGE
     Dates: start: 20040614
  3. VELCADE [Suspect]
     Indication: MANTLE CELL LYMPHOMA
     Dosage: SEE IMAGE
     Dates: start: 20040624
  4. CHOP [Suspect]
     Dates: start: 20040706
  5. CHOP [Suspect]
     Dates: start: 20040709
  6. RITUXIMAB [Suspect]
     Dates: start: 20040706
  7. RITUXIMAB [Suspect]
     Dates: start: 20040709
  8. FLOMAX [Concomitant]
  9. CLOTRIMAZOLE [Concomitant]
  10. TAMULOSIN [Concomitant]
  11. LUMIGOUN [Concomitant]
  12. .. [Concomitant]
  13. ALLOPURINOL [Concomitant]
  14. ZOSYN [Concomitant]

REACTIONS (5)
  - CHYLOTHORAX [None]
  - DYSPNOEA [None]
  - HYPONATRAEMIA [None]
  - PLEURAL EFFUSION [None]
  - TACHYPNOEA [None]
